FAERS Safety Report 24256276 (Version 1)
Quarter: 2024Q3

REPORT INFORMATION
  Report Type: Spontaneous
  Country: MY (occurrence: MY)
  Receive Date: 20240828
  Receipt Date: 20240828
  Transmission Date: 20241017
  Serious: Yes (Death, Other)
  Sender: BOEHRINGER INGELHEIM
  Company Number: MY-BoehringerIngelheim-2024-BI-047642

PATIENT
  Age: 46 Year
  Sex: Male

DRUGS (1)
  1. PRADAXA [Suspect]
     Active Substance: DABIGATRAN ETEXILATE MESYLATE
     Indication: Cardiac ventricular thrombosis

REACTIONS (3)
  - Death [Fatal]
  - Haemorrhage intracranial [Unknown]
  - Off label use [Unknown]

NARRATIVE: CASE EVENT DATE: 20240824
